FAERS Safety Report 12561246 (Version 1)
Quarter: 2016Q3

REPORT INFORMATION
  Report Type: Spontaneous
  Country: IT (occurrence: IT)
  Receive Date: 20160715
  Receipt Date: 20160715
  Transmission Date: 20161109
  Serious: Yes (Other)
  Sender: FDA-Public Use
  Company Number: IT-PFIZER INC-2016335238

PATIENT
  Age: 49 Year
  Sex: Male

DRUGS (5)
  1. NEBILOX [Suspect]
     Active Substance: NEBIVOLOL HYDROCHLORIDE
     Indication: HYPERTENSION
     Dosage: 1 DF, DAILY
     Route: 048
  2. NORVASC [Suspect]
     Active Substance: AMLODIPINE BESYLATE
     Indication: HYPERTENSION
     Dosage: 5 MG, DAILY
     Route: 048
  3. LINCOCIN /00033602/ [Concomitant]
     Indication: TOOTH ABSCESS
     Dosage: 1 DF, UNK
     Dates: start: 20160526, end: 20160528
  4. PRAVASELECT [Concomitant]
     Indication: HYPERCHOLESTEROLAEMIA
     Dosage: 1 DF, UNK
     Route: 048
  5. OKI [Concomitant]
     Active Substance: KETOPROFEN LYSINE
     Indication: PAIN
     Dosage: 2 DF, UNK
     Dates: start: 20160526, end: 20160528

REACTIONS (3)
  - Vertigo [Recovering/Resolving]
  - Hypertension [Recovering/Resolving]
  - Headache [Recovering/Resolving]

NARRATIVE: CASE EVENT DATE: 20160528
